FAERS Safety Report 5975962-1 (Version None)
Quarter: 2008Q4

REPORT INFORMATION
  Report Type: 
  Country: None (occurrence: None)
  Receive Date: 20081202
  Receipt Date: 20081125
  Transmission Date: 20090506
  Serious: Yes (Other)
  Sender: FDA-Public Use
  Company Number: US-ELI_LILLY_AND_COMPANY-US200811005804

PATIENT
  Age: 16 Year
  Sex: Female

DRUGS (2)
  1. PROZAC [Suspect]
     Indication: ANOREXIA
     Dosage: 60 MG, DAILY (1/D)
     Route: 065
  2. ZYPREXA [Concomitant]
     Dosage: UNK, UNKNOWN
     Route: 065

REACTIONS (4)
  - AMENORRHOEA [None]
  - ANAEMIA [None]
  - BONE MARROW FAILURE [None]
  - WEIGHT DECREASED [None]
